FAERS Safety Report 19330845 (Version 1)
Quarter: 2021Q2

REPORT INFORMATION
  Report Type: Spontaneous
  Country: IN (occurrence: IN)
  Receive Date: 20210528
  Receipt Date: 20210528
  Transmission Date: 20210717
  Serious: Yes (Hospitalization, Other)
  Sender: FDA-Public Use
  Company Number: IN-SLATE RUN PHARMACEUTICALS-21IN000498

PATIENT

DRUGS (1)
  1. VORICONAZOLE. [Suspect]
     Active Substance: VORICONAZOLE
     Indication: FUNGAL INFECTION
     Dosage: 200 MILLIGRAM, BID
     Route: 065

REACTIONS (10)
  - Acute kidney injury [Unknown]
  - Jaundice cholestatic [Recovering/Resolving]
  - Chronic kidney disease [Unknown]
  - Type 2 diabetes mellitus [Unknown]
  - Sepsis [Unknown]
  - Limb injury [Unknown]
  - Nephrogenic anaemia [Unknown]
  - Drug-induced liver injury [Recovering/Resolving]
  - Urethral stenosis [Unknown]
  - Septic shock [Unknown]
